FAERS Safety Report 6320777-8 (Version None)
Quarter: 2009Q3

REPORT INFORMATION
  Report Type: 
  Country: None (occurrence: None)
  Receive Date: 20090822
  Receipt Date: 20081215
  Transmission Date: 20100115
  Serious: No
  Sender: FDA-Public Use
  Company Number: US-ABBOTT-08P-163-0493068-00

PATIENT
  Sex: Female
  Weight: 77.18 kg

DRUGS (7)
  1. NIASPAN [Suspect]
     Indication: BLOOD CHOLESTEROL INCREASED
     Dosage: SAMPLES 500-AUG 6WEEKS
     Route: 048
     Dates: start: 20080801
  2. NIASPAN [Suspect]
     Route: 048
     Dates: start: 20081206
  3. UFLEX INJECTIONS IN KNEES [Concomitant]
     Indication: ARTHRITIS
     Dosage: Q SIX MONTHS
     Dates: start: 20070101
  4. UFLEX INJECTIONS IN KNEES [Concomitant]
     Indication: ARTHRALGIA
  5. PAXIL [Concomitant]
     Indication: DRUG USE FOR UNKNOWN INDICATION
     Route: 048
  6. ARTHROTEC [Concomitant]
     Indication: ARTHRITIS
     Route: 048
  7. ARTHROTEC [Concomitant]
     Indication: ARTHRALGIA

REACTIONS (3)
  - ARTHRITIS [None]
  - MUSCLE SPASMS [None]
  - PAIN IN EXTREMITY [None]
